FAERS Safety Report 6756880-8 (Version None)
Quarter: 2010Q2

REPORT INFORMATION
  Report Type: 
  Country: None (occurrence: None)
  Receive Date: 20100604
  Receipt Date: 20100524
  Transmission Date: 20101027
  Serious: Yes (Other)
  Sender: FDA-Public Use
  Company Number: US-ELI_LILLY_AND_COMPANY-US201005006521

PATIENT
  Sex: Female
  Weight: 93.878 kg

DRUGS (5)
  1. BYETTA [Suspect]
     Indication: DIABETES MELLITUS
  2. GLIPIZIDE [Concomitant]
     Indication: DIABETES MELLITUS
     Dosage: 10 MG, 2/D
  3. METFORMIN [Concomitant]
     Dosage: 1000 MG, 2/D
     Route: 048
     Dates: start: 20090610, end: 20100514
  4. METFORMIN [Concomitant]
     Dosage: 500 MG, 4/D
     Route: 048
     Dates: start: 20100514
  5. VITAMIN D [Concomitant]
     Dosage: 50000 U, WEEKLY (1/W)

REACTIONS (10)
  - ABDOMINAL DISCOMFORT [None]
  - ACCIDENT [None]
  - DEEP VEIN THROMBOSIS [None]
  - DIABETES MELLITUS INADEQUATE CONTROL [None]
  - FEMUR FRACTURE [None]
  - HYPERLIPIDAEMIA [None]
  - NAUSEA [None]
  - OSTEOPOROSIS [None]
  - POLYURIA [None]
  - SYSTOLIC HYPERTENSION [None]
